FAERS Safety Report 10150381 (Version 1)
Quarter: 2014Q2

REPORT INFORMATION
  Report Type: Spontaneous
  Country: CH (occurrence: CH)
  Receive Date: 20140502
  Receipt Date: 20140502
  Transmission Date: 20141212
  Serious: Yes (Life-Threatening, Hospitalization)
  Sender: FDA-Public Use
  Company Number: CH-UCBSA-119774

PATIENT
  Age: 38 Year
  Sex: Male
  Weight: 95 kg

DRUGS (7)
  1. KEPPRA [Suspect]
     Indication: EPILEPSY
     Route: 048
     Dates: start: 201402, end: 201402
  2. KEPPRA [Suspect]
     Indication: EPILEPSY
     Route: 048
     Dates: start: 20140224, end: 20140417
  3. LAMICTAL [Suspect]
     Indication: EPILEPSY
     Route: 048
     Dates: start: 20140226, end: 201403
  4. LAMICTAL [Suspect]
     Indication: EPILEPSY
     Dosage: 50 MG ONCE A DAY WHICH WAS STARTED IN MAR-2014 ALONG WITH 25 MG ONCE A DAY STARTED ON 26-FEB-2014
     Route: 048
     Dates: start: 201403, end: 20140411
  5. URBANYL [Concomitant]
     Indication: EPILEPSY
     Route: 048
     Dates: start: 201401
  6. TRIAMCINOLON [Concomitant]
     Indication: RASH MACULO-PAPULAR
     Route: 061
     Dates: start: 20140408
  7. PREDNISONE [Concomitant]
     Indication: RASH MACULO-PAPULAR
     Dosage: 50MG
     Route: 048
     Dates: start: 20140414, end: 20140414

REACTIONS (8)
  - Drug reaction with eosinophilia and systemic symptoms [Recovering/Resolving]
  - Rash maculo-papular [Recovering/Resolving]
  - Hepatocellular injury [Recovered/Resolved]
  - Renal failure acute [Recovered/Resolved]
  - Hypoalbuminaemia [Unknown]
  - Pyrexia [Recovered/Resolved]
  - Normochromic normocytic anaemia [Not Recovered/Not Resolved]
  - Blood lactate dehydrogenase increased [Recovering/Resolving]
